FAERS Safety Report 9120087 (Version 2)
Quarter: 2013Q1

REPORT INFORMATION
  Report Type: Spontaneous
  Country: JP (occurrence: JP)
  Receive Date: 20130226
  Receipt Date: 20130306
  Transmission Date: 20140127
  Serious: Yes (Hospitalization)
  Sender: FDA-Public Use
  Company Number: JP-009507513-1302JPN011042

PATIENT
  Age: 56 Year
  Sex: Male
  Weight: 76 kg

DRUGS (11)
  1. PEGINTRON [Suspect]
     Indication: CHRONIC HEPATITIS C
     Dosage: 1.5 MICROGRAM PER KILOGRAM, QW
     Route: 058
     Dates: start: 20121024, end: 20130116
  2. REBETOL [Suspect]
     Indication: CHRONIC HEPATITIS C
     Dosage: 800 MG, QD, CUMULATIVE DOSE:
     Route: 048
     Dates: start: 20121024, end: 20130129
  3. TELAVIC [Suspect]
     Indication: CHRONIC HEPATITIS C
     Dosage: 2250 MG QD
     Route: 048
     Dates: start: 20121024, end: 20121101
  4. TELAVIC [Suspect]
     Dosage: 1500 MG,QD
     Route: 048
     Dates: start: 20121102, end: 20130115
  5. CLARITIN [Concomitant]
     Indication: PROPHYLAXIS
     Dosage: 10 MG, QD
     Route: 048
     Dates: start: 20121024, end: 20130129
  6. LOBU [Concomitant]
     Indication: PROPHYLAXIS
     Dosage: Q.S PER DAY AS NEEDED
     Route: 048
     Dates: start: 20121024
  7. ZYLORIC [Concomitant]
     Dosage: 2 DF, QD
     Route: 048
     Dates: start: 20121026
  8. POSTERISAN [Concomitant]
     Indication: HAEMORRHOIDS
     Dosage: Q.S PER DAY
     Route: 061
     Dates: start: 20121027
  9. PRIMPERAN [Concomitant]
     Indication: PROPHYLAXIS
     Dosage: Q.S PER DAY AS NEEDED
     Route: 048
     Dates: start: 20121031, end: 20121103
  10. BEZATOL [Concomitant]
     Indication: HYPERLIPIDAEMIA
     Dosage: 2 DF, QD
     Route: 048
     Dates: start: 20121105, end: 20121107
  11. HYALEIN [Concomitant]
     Indication: DRY EYE
     Dosage: FORMULATION: EED, Q.S PER DAY
     Route: 047
     Dates: start: 20130104

REACTIONS (1)
  - Interstitial lung disease [Recovered/Resolved]
